FAERS Safety Report 16733982 (Version 1)
Quarter: 2019Q3

REPORT INFORMATION
  Report Type: Spontaneous
  Country: US (occurrence: US)
  Receive Date: 20190823
  Receipt Date: 20190823
  Transmission Date: 20191005
  Serious: No
  Sender: FDA-Public Use
  Company Number: US-ALLERGAN-1837541US

PATIENT
  Age: 82 Year
  Sex: Male

DRUGS (6)
  1. CELEXA [Suspect]
     Active Substance: CITALOPRAM HYDROBROMIDE
     Dosage: 10 MG, BID (MORNING)
     Route: 048
  2. CELEXA [Suspect]
     Active Substance: CITALOPRAM HYDROBROMIDE
     Indication: PARKINSON^S DISEASE
     Dosage: 20 MG, QD (EVENING)
     Route: 048
  3. SINEMET [Concomitant]
     Active Substance: CARBIDOPA\LEVODOPA
     Indication: PARKINSON^S DISEASE
     Dosage: 25 MG, TID
     Route: 048
  4. TRAZODONA [Concomitant]
     Active Substance: TRAZODONE HYDROCHLORIDE
     Indication: INSOMNIA
     Dosage: 50 MG, QPM
     Route: 048
  5. CELEXA [Suspect]
     Active Substance: CITALOPRAM HYDROBROMIDE
     Indication: DEMENTIA
     Dosage: 10 MG, QD (WITH BREAKFAST)
     Route: 048
     Dates: start: 201806
  6. SEROQUEL [Concomitant]
     Active Substance: QUETIAPINE FUMARATE
     Dosage: 1001.25 MG, QPM (CRUSHED)
     Route: 048

REACTIONS (4)
  - Paralysis [Recovered/Resolved]
  - Agitation [Unknown]
  - Off label use [Unknown]
  - Wrong technique in product usage process [Unknown]

NARRATIVE: CASE EVENT DATE: 201806
